FAERS Safety Report 8154597-9 (Version None)
Quarter: 2012Q1

REPORT INFORMATION
  Report Type: 
  Country: None (occurrence: None)
  Receive Date: 20120221
  Receipt Date: 20120214
  Transmission Date: 20120608
  Serious: Yes (Hospitalization, Other)
  Sender: FDA-Public Use
  Company Number: US-ROXANE LABORATORIES, INC.-2012-RO-00659RO

PATIENT
  Age: 51 Year
  Sex: Female

DRUGS (9)
  1. INFLIXIMAB [Suspect]
     Indication: BEHCET'S SYNDROME
  2. ADALIMUMAB [Suspect]
     Indication: BEHCET'S SYNDROME
  3. CYCLOPHOSPHAMIDE [Suspect]
     Indication: BEHCET'S SYNDROME
     Route: 042
  4. AZATHIOPRINE [Suspect]
     Indication: BEHCET'S SYNDROME
  5. TEMSIROLIMUS [Suspect]
     Route: 042
  6. SULFASALAZINE [Suspect]
     Indication: BEHCET'S SYNDROME
  7. TEMSIROLIMUS [Suspect]
     Indication: BEHCET'S SYNDROME
  8. HYDROXYCHLOROQUINE SULFATE [Suspect]
     Indication: BEHCET'S SYNDROME
  9. COLCHICINE [Suspect]
     Indication: BEHCET'S SYNDROME

REACTIONS (3)
  - LEUKOPENIA [None]
  - PANCYTOPENIA [None]
  - BEHCET'S SYNDROME [None]
